FAERS Safety Report 8287767-X (Version None)
Quarter: 2012Q2

REPORT INFORMATION
  Report Type: 
  Country: None (occurrence: None)
  Receive Date: 20120416
  Receipt Date: 20120405
  Transmission Date: 20120825
  Serious: Yes (Other)
  Sender: FDA-Public Use
  Company Number: JP-MERCK-1204USA01519

PATIENT
  Age: 21 Year
  Sex: Female

DRUGS (4)
  1. SINGULAIR [Suspect]
     Indication: ASTHMA
     Route: 048
     Dates: start: 20120318
  2. SYMBICORT [Concomitant]
     Dosage: DAILY DOSAGE UNKNOWN
     Route: 055
  3. MIRTAZAPINE [Concomitant]
     Indication: MENTAL DISORDER
     Dosage: DAILY DOSE UNKNOWN
     Route: 065
     Dates: start: 20120312
  4. PREDNISOLONE [Concomitant]
     Route: 048

REACTIONS (2)
  - MUSCULAR WEAKNESS [None]
  - QUADRIPLEGIA [None]
